FAERS Safety Report 14752582 (Version 1)
Quarter: 2018Q2

REPORT INFORMATION
  Report Type: Spontaneous
  Country: US (occurrence: US)
  Receive Date: 20180406
  Receipt Date: 20180406
  Transmission Date: 20180711
  Serious: Yes (Hospitalization)
  Sender: FDA-Public Use
  Company Number: None

PATIENT
  Age: 83 Year
  Sex: Male
  Weight: 91 kg

DRUGS (2)
  1. LEUPROLIDE ACETATE. [Suspect]
     Active Substance: LEUPROLIDE ACETATE
     Dates: end: 20170919
  2. CASODEX [Suspect]
     Active Substance: BICALUTAMIDE
     Dates: end: 20170428

REACTIONS (6)
  - Hyponatraemia [None]
  - Scrotal oedema [None]
  - Urinary tract infection [None]
  - Haemorrhage [None]
  - Cardiac failure congestive [None]
  - Pulmonary hypertension [None]

NARRATIVE: CASE EVENT DATE: 20180207
